FAERS Safety Report 8033274 (Version 3)
Quarter: 2014Q2

REPORT INFORMATION
  Report Type: Spontaneous
  Country: US (occurrence: US)
  Receive Date: 20110713
  Receipt Date: 20140611
  Transmission Date: 20141212
  Serious: Yes (Hospitalization)
  Sender: FDA-Public Use
  Company Number: US-GLAXOSMITHKLINE-A0933154A

PATIENT
  Age: 77 Year
  Sex: Male
  Weight: 91.4 kg

DRUGS (1)
  1. AVANDIA [Suspect]
     Indication: TYPE 2 DIABETES MELLITUS
     Dosage: 4MG PER DAY
     Route: 048
     Dates: start: 200612, end: 200812

REACTIONS (3)
  - Cerebrovascular accident [Not Recovered/Not Resolved]
  - Angina unstable [Unknown]
  - Coronary artery disease [Unknown]
